FAERS Safety Report 5399319-X (Version None)
Quarter: 2007Q3

REPORT INFORMATION
  Report Type: 
  Country: None (occurrence: None)
  Receive Date: 20070727
  Receipt Date: 20070717
  Transmission Date: 20080115
  Serious: Yes (Hospitalization, Other)
  Sender: FDA-Public Use
  Company Number: US-JNJFOC-20070405750

PATIENT
  Sex: Male
  Weight: 74.39 kg

DRUGS (6)
  1. REMICADE [Suspect]
     Indication: RHEUMATOID ARTHRITIS
     Route: 042
  2. LISINOPRIL [Concomitant]
     Indication: HYPERTENSION
  3. BONIVA [Concomitant]
     Indication: OSTEOPOROSIS
  4. SINGULAIR [Concomitant]
     Indication: ASTHMA
  5. FLOMAX [Concomitant]
     Indication: BENIGN PROSTATIC HYPERPLASIA
  6. METHOTREXATE [Concomitant]
     Indication: RHEUMATOID ARTHRITIS

REACTIONS (1)
  - NON-SMALL CELL LUNG CANCER METASTATIC [None]
